FAERS Safety Report 5645155-6 (Version None)
Quarter: 2008Q1

REPORT INFORMATION
  Report Type: 
  Country: None (occurrence: None)
  Receive Date: 20080229
  Receipt Date: 20080225
  Transmission Date: 20080703
  Serious: Yes (Life-Threatening, Hospitalization)
  Sender: FDA-Public Use
  Company Number: FR-ASTRAZENECA-2008CG00305

PATIENT
  Age: 11189 Day
  Sex: Male

DRUGS (6)
  1. DIPRIVAN [Suspect]
     Route: 042
     Dates: start: 20080202, end: 20080203
  2. LOXAPAC [Concomitant]
     Route: 048
  3. LOXAPAC [Concomitant]
     Route: 048
     Dates: start: 20080201, end: 20080201
  4. VALIUM [Concomitant]
     Indication: GRAND MAL CONVULSION
     Dates: start: 20080201, end: 20080201
  5. HYPNOVEL [Concomitant]
     Dates: start: 20080202
  6. AUGMENTIN '250' [Concomitant]
     Dates: start: 20080202

REACTIONS (4)
  - METABOLIC ACIDOSIS [None]
  - PROPOFOL INFUSION SYNDROME [None]
  - RENAL FAILURE ACUTE [None]
  - RHABDOMYOLYSIS [None]
